FAERS Safety Report 10960429 (Version 1)
Quarter: 2015Q1

REPORT INFORMATION
  Report Type: Spontaneous
  Country: SE (occurrence: SE)
  Receive Date: 20150327
  Receipt Date: 20150327
  Transmission Date: 20150721
  Serious: Yes (Hospitalization)
  Sender: FDA-Public Use
  Company Number: SE-MALLINCKRODT-T201501675

PATIENT
  Age: 55 Year
  Sex: Male

DRUGS (1)
  1. OPTIRAY 350 [Suspect]
     Active Substance: IOVERSOL
     Indication: SCAN WITH CONTRAST
     Dosage: 111 ML, SINGLE
     Route: 042
     Dates: start: 20150303, end: 20150303

REACTIONS (3)
  - Mouth swelling [Unknown]
  - Pharyngeal oedema [Unknown]
  - Sneezing [Unknown]

NARRATIVE: CASE EVENT DATE: 20150303
